FAERS Safety Report 17705673 (Version 2)
Quarter: 2020Q2

REPORT INFORMATION
  Report Type: Report from Study
  Country: PT (occurrence: PT)
  Receive Date: 20200424
  Receipt Date: 20200629
  Transmission Date: 20200714
  Serious: Yes (Hospitalization)
  Sender: FDA-Public Use
  Company Number: PT-PFIZER INC-2020162251

PATIENT
  Age: 38 Year
  Sex: Male
  Weight: 93 kg

DRUGS (8)
  1. METHYLPREDNISOLONE SODIUM SUCCINATE. [Suspect]
     Active Substance: METHYLPREDNISOLONE SODIUM SUCCINATE
     Indication: ACUTE GRAFT VERSUS HOST DISEASE
     Dosage: 100 MG, 2X/DAY
     Route: 042
     Dates: start: 20180424
  2. PREDNISONE. [Suspect]
     Active Substance: PREDNISONE
     Dosage: 40 MG, TID
     Route: 048
     Dates: start: 20180509
  3. NEORAL [Suspect]
     Active Substance: CYCLOSPORINE
     Dosage: 170 MG
     Route: 065
     Dates: start: 20180403
  4. ITACITINIB [Suspect]
     Active Substance: ITACITINIB
     Dosage: 200 MG, QD
     Route: 048
     Dates: start: 20180424
  5. PREDNISONE. [Suspect]
     Active Substance: PREDNISONE
     Indication: ACUTE GRAFT VERSUS HOST DISEASE
     Dosage: 80 MG, TID
     Route: 048
     Dates: start: 20180425, end: 20180508
  6. PREDNISONE. [Suspect]
     Active Substance: PREDNISONE
     Dosage: UNK
     Route: 048
     Dates: start: 20180605
  7. ACICLOVIR [Suspect]
     Active Substance: ACYCLOVIR
     Dosage: 400 MG
     Route: 065
     Dates: start: 20180322
  8. PLACEBO [Suspect]
     Active Substance: UNSPECIFIED INGREDIENT
     Dosage: UNK
     Dates: start: 20180424

REACTIONS (1)
  - Cytomegalovirus infection reactivation [Recovered/Resolved]

NARRATIVE: CASE EVENT DATE: 20180529
